FAERS Safety Report 25883000 (Version 2)
Quarter: 2025Q4

REPORT INFORMATION
  Report Type: Report from Study
  Country: US (occurrence: US)
  Receive Date: 20251006
  Receipt Date: 20251128
  Transmission Date: 20260119
  Serious: Yes (Other)
  Sender: ACADIA PHARMACEUTICALS
  Company Number: US-ACADIA PHARMACEUTICALS INC.-ACA-2025-PIM-010787

PATIENT
  Age: 78 Year
  Sex: Male

DRUGS (19)
  1. NUPLAZID [Suspect]
     Active Substance: PIMAVANSERIN TARTRATE
     Indication: Parkinson^s disease
     Dosage: 34 MILLIGRAM, QD
     Route: 048
     Dates: start: 20240919
  2. MELATONIN [Concomitant]
     Active Substance: MELATONIN
  3. ADULT MULTIVITAMIN [Concomitant]
  4. CARBIDOPA\LEVODOPA [Concomitant]
     Active Substance: CARBIDOPA\LEVODOPA
  5. SEROQUEL [Concomitant]
     Active Substance: QUETIAPINE FUMARATE
  6. LYRICA [Concomitant]
     Active Substance: PREGABALIN
  7. LISINOPRIL [Concomitant]
     Active Substance: LISINOPRIL
  8. NORCO [Concomitant]
     Active Substance: ACETAMINOPHEN\HYDROCODONE BITARTRATE
  9. ZOFRAN [Concomitant]
     Active Substance: ONDANSETRON HYDROCHLORIDE
  10. PYRIDOSTIGMINE [Concomitant]
     Active Substance: PYRIDOSTIGMINE
  11. ROSUVASTATIN [Concomitant]
     Active Substance: ROSUVASTATIN
  12. BUSPAR [Concomitant]
     Active Substance: BUSPIRONE HYDROCHLORIDE
  13. RIVASTIGMINE [Concomitant]
     Active Substance: RIVASTIGMINE
  14. FAMOTIDINE [Concomitant]
     Active Substance: FAMOTIDINE
  15. DULOXETINE [Concomitant]
     Active Substance: DULOXETINE
  16. ELIQUIS [Concomitant]
     Active Substance: APIXABAN
     Indication: Pulmonary embolism
  17. PREGABALIN [Concomitant]
     Active Substance: PREGABALIN
  18. QUETIAPINE [Concomitant]
     Active Substance: QUETIAPINE
  19. ALBUTEROL SULFATE [Concomitant]
     Active Substance: ALBUTEROL SULFATE

REACTIONS (3)
  - Pulmonary embolism [Not Recovered/Not Resolved]
  - Nausea [Recovered/Resolved]
  - Intentional dose omission [Recovered/Resolved]

NARRATIVE: CASE EVENT DATE: 20250824
